FAERS Safety Report 4293176-0 (Version None)
Quarter: 2004Q1

REPORT INFORMATION
  Report Type: 
  Country: None (occurrence: None)
  Receive Date: 20040212
  Receipt Date: 20030612
  Transmission Date: 20041129
  Serious: No
  Sender: FDA-Public Use
  Company Number: US-GLAXOSMITHKLINE-A0413127A

PATIENT
  Sex: Female

DRUGS (1)
  1. PAXIL CR [Suspect]
     Route: 048
     Dates: start: 20030501

REACTIONS (2)
  - POSTNASAL DRIP [None]
  - RHINITIS ALLERGIC [None]
